FAERS Safety Report 5865713-3 (Version None)
Quarter: 2008Q3

REPORT INFORMATION
  Report Type: 
  Country: None (occurrence: None)
  Receive Date: 20080829
  Receipt Date: 20080818
  Transmission Date: 20090109
  Serious: Yes (Hospitalization, Disabling, Other)
  Sender: FDA-Public Use
  Company Number: US-ROCHE-381292

PATIENT
  Sex: Female
  Weight: 76.7 kg

DRUGS (37)
  1. PEGASYS [Suspect]
     Route: 058
     Dates: start: 20040809, end: 20041005
  2. COPEGUS [Suspect]
     Route: 048
     Dates: start: 20040809, end: 20041005
  3. LEXAPRO [Concomitant]
     Indication: ANTIDEPRESSANT THERAPY
     Route: 048
  4. LEXAPRO [Concomitant]
     Route: 048
  5. LEXAPRO [Concomitant]
     Route: 048
  6. TRAZODONE HCL [Concomitant]
     Indication: ANTIDEPRESSANT THERAPY
     Dosage: OTHER INDICATION: FOR SLEEP AT NIGHT (PM)
  7. EFFEXOR [Concomitant]
     Dosage: AT NIGHT (PM)
  8. EFFEXOR [Concomitant]
  9. BUSPAR [Concomitant]
     Indication: ANTIDEPRESSANT THERAPY
     Dosage: 20 MG AM 10 MG PM + PM
  10. ALBUTEROL [Concomitant]
     Indication: ASTHMA
     Dosage: OTHER INDICATION: ANXIETY DOSE: 17 GRAM DOSE: AM AND PM AS NEEDED
  11. ADVIL LIQUI-GELS [Concomitant]
     Indication: ASTHMA
  12. PREMARIN [Concomitant]
  13. PREMARIN [Concomitant]
     Dosage: FREQUENCY: 1 TABLET 3 DAYS A WEEK
  14. CLONAZEPAM [Concomitant]
     Indication: AGITATION
  15. CLONAZEPAM [Concomitant]
     Dosage: AT BEDTIME
  16. CARBIDOPA AND LEVODOPA [Concomitant]
     Dosage: DRUG: CARBIDOPA /LEVODOPA ER STRENGTH 50/200 15 MINUTES BEFORE BED
  17. 1 CONCOMITANT DRUG [Concomitant]
     Dosage: MORNING AND AFTERNOON
  18. MIRTAZAPINE [Concomitant]
     Dosage: AT BEDTIME
  19. DEPAKOTE ER [Concomitant]
     Dosage: AT BEDTIME
  20. EFFEXOR XR [Concomitant]
     Dosage: AT BEDTIME
  21. VICODIN ES [Concomitant]
     Dosage: DOSE: 13X,S DAILY
  22. PROVIGIL [Concomitant]
     Dosage: AM AND PM
  23. PROVIGIL [Concomitant]
  24. KLONOPIN [Concomitant]
     Route: 048
  25. PROLIXIN [Concomitant]
     Route: 048
  26. REMERON [Concomitant]
     Dosage: AT BEDTIME
     Route: 048
  27. REMERON [Concomitant]
     Dosage: AT BEDTIME
     Route: 048
  28. ROBITUSSIN DM [Concomitant]
     Dosage: AS NEEDED
  29. PRILOSEC [Concomitant]
     Dosage: DRUG: PRILOSEC OTC AS NEEDED
  30. SINGULAIR [Concomitant]
     Indication: ASTHMA
     Dosage: OTHER INDICATION: ANXIETY AS NEEDED
  31. ADVAIR DISKUS 100/50 [Concomitant]
     Indication: ANXIETY
     Dosage: STRENGTH: 250/50 AS NEEDED
  32. TRILEPTAL [Concomitant]
     Dosage: HAD ALLERGIC REACTION
     Dates: start: 20080705, end: 20080705
  33. NEURONTIN [Concomitant]
  34. CHLORAL HYDRATE [Concomitant]
  35. RESTORIL [Concomitant]
     Indication: SLEEP DISORDER THERAPY
     Dosage: AT NIGHT (PM)
  36. MIRAPEX [Concomitant]
  37. MIRAPEX [Concomitant]

REACTIONS (16)
  - ANAEMIA [None]
  - ARTHRALGIA [None]
  - ARTHRITIS [None]
  - DEPRESSION [None]
  - FATIGUE [None]
  - FIBROMYALGIA [None]
  - HEADACHE [None]
  - INFLUENZA LIKE ILLNESS [None]
  - NAUSEA [None]
  - NEUTROPENIA [None]
  - PARKINSON'S DISEASE [None]
  - PLATELET COUNT DECREASED [None]
  - PSYCHOTIC DISORDER [None]
  - RASH [None]
  - SUICIDAL IDEATION [None]
  - WEIGHT DECREASED [None]
